FAERS Safety Report 8121669-4 (Version None)
Quarter: 2012Q1

REPORT INFORMATION
  Report Type: 
  Country: None (occurrence: None)
  Receive Date: 20120208
  Receipt Date: 20120206
  Transmission Date: 20120608
  Serious: Yes (Hospitalization, Other)
  Sender: FDA-Public Use
  Company Number: US-PFIZER INC-2012032500

PATIENT
  Sex: Female
  Weight: 54.422 kg

DRUGS (6)
  1. LIPITOR [Suspect]
     Indication: BLOOD CHOLESTEROL INCREASED
  2. PRAVACHOL [Suspect]
     Indication: BLOOD CHOLESTEROL INCREASED
  3. TOPROL-XL [Concomitant]
     Dosage: 250 MG, 2X/DAY
  4. LIPITOR [Suspect]
     Indication: BLOOD TRIGLYCERIDES INCREASED
     Dosage: 10 MG, 1X/DAY
     Route: 048
     Dates: start: 19990101, end: 20040101
  5. PREMARIN [Concomitant]
     Dosage: 0.3 MG, UNK
  6. PRAVACHOL [Suspect]
     Indication: BLOOD TRIGLYCERIDES INCREASED
     Dosage: 40 MG, UNK
     Dates: start: 20040101

REACTIONS (1)
  - PANCREATITIS [None]
